FAERS Safety Report 7046169-4 (Version None)
Quarter: 2010Q4

REPORT INFORMATION
  Report Type: 
  Country: None (occurrence: None)
  Receive Date: 20101014
  Receipt Date: 20101004
  Transmission Date: 20110411
  Serious: Yes (Hospitalization, Other)
  Sender: FDA-Public Use
  Company Number: IT-WYE-H18124010

PATIENT
  Sex: Male

DRUGS (3)
  1. AMIODARONE HCL [Suspect]
  2. CARVEDILOL [Concomitant]
  3. WARFARIN SODIUM [Concomitant]

REACTIONS (1)
  - CARDIOMYOPATHY [None]
